FAERS Safety Report 8282815-5 (Version None)
Quarter: 2012Q2

REPORT INFORMATION
  Report Type: 
  Country: None (occurrence: None)
  Receive Date: 20120413
  Receipt Date: 20120410
  Transmission Date: 20120825
  Serious: Yes (Other)
  Sender: FDA-Public Use
  Company Number: PHHY2012AR028845

PATIENT
  Sex: Female

DRUGS (1)
  1. ONBREZ [Suspect]
     Indication: DYSPNOEA
     Dosage: 300 MG, QD

REACTIONS (3)
  - LUNG NEOPLASM [None]
  - LUNG DISORDER [None]
  - BLOOD TEST ABNORMAL [None]
